FAERS Safety Report 15867617 (Version 1)
Quarter: 2019Q1

REPORT INFORMATION
  Report Type: Spontaneous
  Country: US (occurrence: US)
  Receive Date: 20190125
  Receipt Date: 20190125
  Transmission Date: 20190417
  Serious: Yes (Other)
  Sender: FDA-Public Use
  Company Number: US-ASTRAZENECA-2019SE10711

PATIENT
  Age: 57 Year
  Sex: Female

DRUGS (8)
  1. ZOCOR [Concomitant]
     Active Substance: SIMVASTATIN
  2. ULORIC [Concomitant]
     Active Substance: FEBUXOSTAT
  3. CALCITRIOL. [Concomitant]
     Active Substance: CALCITRIOL
  4. DIOVAN [Concomitant]
     Active Substance: VALSARTAN
  5. AMLODIPINE [Concomitant]
     Active Substance: AMLODIPINE BESYLATE
  6. CALCIUM ACETATE. [Concomitant]
     Active Substance: CALCIUM ACETATE
  7. NEXIUM [Suspect]
     Active Substance: ESOMEPRAZOLE MAGNESIUM
     Route: 048
     Dates: start: 20081222, end: 20160203
  8. NEXIUM [Suspect]
     Active Substance: ESOMEPRAZOLE MAGNESIUM
     Route: 048

REACTIONS (6)
  - Renal failure [Unknown]
  - End stage renal disease [Unknown]
  - Chronic kidney disease [Unknown]
  - Nephrogenic anaemia [Unknown]
  - Rebound effect [Unknown]
  - Hyperchlorhydria [Unknown]

NARRATIVE: CASE EVENT DATE: 2015
